FAERS Safety Report 9002449 (Version 3)
Quarter: 2013Q2

REPORT INFORMATION
  Report Type: Spontaneous
  Country: JP (occurrence: JP)
  Receive Date: 20130107
  Receipt Date: 20130415
  Transmission Date: 20140414
  Serious: Yes (Hospitalization)
  Sender: FDA-Public Use
  Company Number: JP-NOVOPROD-367102

PATIENT
  Age: 62 Year
  Sex: Male
  Weight: 64 kg

DRUGS (13)
  1. NOVORAPID 30 MIX CHU FLEXPEN [Suspect]
     Indication: TYPE 2 DIABETES MELLITUS
     Dosage: 24 U, QD
     Route: 058
     Dates: start: 200803
  2. NOVOLIN R CHU FLEXPEN [Suspect]
     Indication: TYPE 2 DIABETES MELLITUS
     Route: 058
  3. NOVOLIN N CHU FLEXPEN [Suspect]
     Indication: TYPE 2 DIABETES MELLITUS
     Route: 058
  4. NOVORAPID CHU FLEXPEN [Suspect]
     Indication: TYPE 2 DIABETES MELLITUS
     Route: 058
  5. LEVEMIR CHU FLEXPEN [Suspect]
     Indication: TYPE 2 DIABETES MELLITUS
     Route: 058
  6. HUMALOG [Suspect]
     Indication: TYPE 2 DIABETES MELLITUS
     Dosage: 18 U, QD
     Route: 058
     Dates: start: 200906, end: 200906
  7. APIDRA [Suspect]
     Indication: TYPE 2 DIABETES MELLITUS
     Dosage: 8 U, QD
     Route: 058
     Dates: start: 200906
  8. LANTUS [Suspect]
     Indication: TYPE 2 DIABETES MELLITUS
     Dosage: 10 U, QD
     Route: 058
     Dates: start: 200906, end: 200906
  9. ACTOS [Concomitant]
     Indication: TYPE 2 DIABETES MELLITUS
     Route: 048
  10. SEIBULE [Concomitant]
     Indication: TYPE 2 DIABETES MELLITUS
     Dosage: 150 MG, QD
  11. KREMEZIN [Concomitant]
     Indication: NEPHROPATHY
     Dosage: 6 G, QD
     Route: 048
  12. ADONA                              /00056903/ [Concomitant]
     Dosage: 90 MG, QD
     Route: 048
  13. CARNACULIN                         /00088101/ [Concomitant]
     Dosage: 150 IU, UNK
     Route: 048

REACTIONS (3)
  - Anti-insulin antibody positive [Not Recovered/Not Resolved]
  - Diabetes mellitus inadequate control [Recovering/Resolving]
  - Injection site reaction [Recovering/Resolving]
